FAERS Safety Report 9395193 (Version 1)
Quarter: 2013Q3

REPORT INFORMATION
  Report Type: Spontaneous
  Country: US (occurrence: US)
  Receive Date: 20130711
  Receipt Date: 20130711
  Transmission Date: 20140515
  Serious: Yes (Other)
  Sender: FDA-Public Use
  Company Number: US-ASTELLAS-2013US004342

PATIENT
  Age: 73 Year
  Sex: Male

DRUGS (2)
  1. MYRBETRIQ [Suspect]
     Indication: URINARY INCONTINENCE
     Dosage: 25 MG, UID/QD
     Route: 065
     Dates: start: 201212
  2. ANTIHYPERTENSIVES [Concomitant]
     Indication: BLOOD PRESSURE INCREASED
     Dosage: UNK
     Route: 065

REACTIONS (2)
  - Hypertension [Recovered/Resolved]
  - Urinary tract infection [Recovered/Resolved]
